FAERS Safety Report 7883800-5 (Version None)
Quarter: 2011Q4

REPORT INFORMATION
  Report Type: 
  Country: None (occurrence: None)
  Receive Date: 20111102
  Receipt Date: 20111026
  Transmission Date: 20120403
  Serious: Yes (Other)
  Sender: FDA-Public Use
  Company Number: JP-PFIZER INC-2009167629

PATIENT
  Age: 60 Year
  Sex: Female

DRUGS (4)
  1. AMPHOTERICIN B [Concomitant]
     Route: 047
  2. DIFLUCAN [Concomitant]
     Route: 047
  3. VFEND [Suspect]
     Indication: KERATITIS FUNGAL
     Dosage: UNK
     Route: 042
     Dates: end: 20090210
  4. ITRACONAZOLE [Concomitant]
     Route: 048

REACTIONS (1)
  - PSYCHIATRIC SYMPTOM [None]
